FAERS Safety Report 10448835 (Version 1)
Quarter: 2014Q3

REPORT INFORMATION
  Report Type: Spontaneous
  Country: GB (occurrence: GB)
  Receive Date: 20140912
  Receipt Date: 20140912
  Transmission Date: 20150326
  Serious: Yes (Hospitalization)
  Sender: FDA-Public Use
  Company Number: GB-BIOGENIDEC-2014BI092118

PATIENT
  Sex: Female

DRUGS (1)
  1. AVONEX [Suspect]
     Active Substance: INTERFERON BETA-1A
     Indication: RELAPSING-REMITTING MULTIPLE SCLEROSIS
     Route: 030

REACTIONS (9)
  - Emotional disorder [Unknown]
  - Anxiety [Unknown]
  - Influenza like illness [Unknown]
  - Crying [Unknown]
  - Injection site reaction [Unknown]
  - Fatigue [Unknown]
  - Injection site pain [Unknown]
  - Arthroscopy [Unknown]
  - Gastric disorder [Unknown]
